FAERS Safety Report 16268899 (Version 1)
Quarter: 2019Q2

REPORT INFORMATION
  Report Type: Spontaneous
  Country: US (occurrence: US)
  Receive Date: 20190328
  Receipt Date: 20190328
  Transmission Date: 20190711
  Serious: Yes (Hospitalization)
  Sender: FDA-Public Use
  Company Number: None

PATIENT
  Age: 58 Year

DRUGS (1)
  1. EMPAGLIFLOZIN [Suspect]
     Active Substance: EMPAGLIFLOZIN
     Indication: DIABETES MELLITUS
     Route: 048
     Dates: start: 20180604, end: 20190101

REACTIONS (4)
  - Acute kidney injury [None]
  - Orthostatic hypotension [None]
  - Hypovolaemia [None]
  - Azotaemia [None]

NARRATIVE: CASE EVENT DATE: 20181212
